FAERS Safety Report 9888995 (Version 1)
Quarter: 2014Q1

REPORT INFORMATION
  Report Type: Spontaneous
  Country: US (occurrence: None)
  Receive Date: 20140210
  Receipt Date: 20140210
  Transmission Date: 20141002
  Serious: Yes (Life-Threatening, Hospitalization, Disabling, Other)
  Sender: FDA-Public Use
  Company Number: None

PATIENT
  Age: 50 Year
  Sex: Male
  Weight: 90.72 kg

DRUGS (1)
  1. ANDROGEL [Suspect]
     Indication: BLOOD TESTOSTERONE DECREASED
     Dosage: 1 PACKET TWICE DAILY APPLIED TO A SURFACE, USUALLY THE SKIN
     Dates: start: 20080201, end: 20120504

REACTIONS (3)
  - Brain stem stroke [None]
  - Haematocrit increased [None]
  - Blood viscosity increased [None]
